FAERS Safety Report 4502444-6 (Version None)
Quarter: 2004Q4

REPORT INFORMATION
  Report Type: 
  Country: None (occurrence: None)
  Receive Date: 20041110
  Receipt Date: 20041025
  Transmission Date: 20050328
  Serious: Yes (Hospitalization)
  Sender: FDA-Public Use
  Company Number: 2004AP05553

PATIENT
  Age: 70 Year
  Sex: Female
  Weight: 58 kg

DRUGS (6)
  1. IRESSA [Suspect]
     Indication: PANCREATIC CARCINOMA
     Dosage: 250 MG DAILY PO
     Route: 048
     Dates: start: 20040927
  2. GEMCITABINE [Suspect]
     Indication: PANCREATIC CARCINOMA
     Dosage: 313 MG IV
     Route: 042
     Dates: start: 20040927
  3. RADIOTHERAPY [Suspect]
     Indication: PANCREATIC CARCINOMA
  4. OMEPRAZOLE [Concomitant]
  5. METHADONE [Concomitant]
  6. IBUPROFEN [Concomitant]

REACTIONS (2)
  - NEUTROPENIA [None]
  - VOMITING [None]
